FAERS Safety Report 7594909-8 (Version None)
Quarter: 2011Q3

REPORT INFORMATION
  Report Type: 
  Country: None (occurrence: None)
  Receive Date: 20110707
  Receipt Date: 20110623
  Transmission Date: 20111222
  Serious: Yes (Other)
  Sender: FDA-Public Use
  Company Number: FR-JNJFOC-20110611525

PATIENT
  Age: 61 Year
  Sex: Female

DRUGS (22)
  1. REMICADE [Suspect]
     Route: 042
  2. REMICADE [Suspect]
     Route: 042
     Dates: start: 20100222
  3. REMICADE [Suspect]
     Route: 042
     Dates: start: 20101203
  4. REMICADE [Suspect]
     Route: 042
     Dates: start: 20110407
  5. SYMBICORT [Concomitant]
     Indication: ASTHMA
  6. REMICADE [Suspect]
     Route: 042
  7. REMICADE [Suspect]
     Route: 042
  8. REMICADE [Suspect]
     Route: 042
     Dates: start: 20110114
  9. OXEOL [Concomitant]
     Indication: DEPRESSION
  10. REMICADE [Suspect]
     Route: 042
     Dates: start: 20110225
  11. LEXOMIL [Concomitant]
     Indication: DEPRESSION
  12. REMICADE [Suspect]
     Route: 042
  13. REMICADE [Suspect]
     Route: 042
  14. SINGULAIR [Concomitant]
     Indication: ASTHMA
  15. REMICADE [Suspect]
     Route: 042
  16. REMICADE [Suspect]
     Route: 042
  17. REMICADE [Suspect]
     Route: 042
     Dates: start: 20110520, end: 20110520
  18. HYDROCORTISONE [Concomitant]
     Indication: PREMEDICATION
     Dates: start: 20110520
  19. REMICADE [Suspect]
     Indication: RHEUMATOID ARTHRITIS
     Route: 042
  20. REMICADE [Suspect]
     Route: 042
  21. REMICADE [Suspect]
     Dosage: INFUSIONS 1-5
     Route: 042
     Dates: start: 20090724
  22. MICARDIS [Concomitant]
     Indication: HYPERTENSION

REACTIONS (7)
  - HYPOTENSION [None]
  - RASH [None]
  - INFUSION RELATED REACTION [None]
  - MALAISE [None]
  - HYPERSENSITIVITY [None]
  - CHEST DISCOMFORT [None]
  - CHOKING SENSATION [None]
